FAERS Safety Report 5762115-5 (Version None)
Quarter: 2008Q2

REPORT INFORMATION
  Report Type: 
  Country: None (occurrence: None)
  Receive Date: 20080604
  Receipt Date: 20080520
  Transmission Date: 20081010
  Serious: Yes (Disabling)
  Sender: FDA-Public Use
  Company Number: 8032924

PATIENT
  Age: 10 Year
  Sex: Female

DRUGS (2)
  1. PREDNISOLONE [Suspect]
     Indication: GRAFT VERSUS HOST DISEASE
     Dosage: 3 UG/KG/D;
  2. CYCLOSPORINE [Suspect]
     Indication: GRAFT VERSUS HOST DISEASE
     Dosage: 4 MG/KG/D;

REACTIONS (4)
  - ALOPECIA [None]
  - CHRONIC GRAFT VERSUS HOST DISEASE [None]
  - GAIT DISTURBANCE [None]
  - JOINT CONTRACTURE [None]
